FAERS Safety Report 7878969-2 (Version None)
Quarter: 2011Q4

REPORT INFORMATION
  Report Type: 
  Country: None (occurrence: None)
  Receive Date: 20111101
  Receipt Date: 20111023
  Transmission Date: 20120403
  Serious: Yes (Other)
  Sender: FDA-Public Use
  Company Number: PHHY2011MX93961

PATIENT
  Age: 53 Year
  Sex: Female

DRUGS (1)
  1. ZOLEDRONOC ACID [Suspect]
     Indication: OSTEOPOROSIS
     Dosage: 5 MG/100 ML, ONCE A YEAR
     Route: 042
     Dates: start: 20101001

REACTIONS (11)
  - HEADACHE [None]
  - ABASIA [None]
  - CHILLS [None]
  - PYREXIA [None]
  - BUNION [None]
  - MYALGIA [None]
  - BONE PAIN [None]
  - INFLUENZA [None]
  - ARTHRALGIA [None]
  - OROPHARYNGEAL PAIN [None]
  - TACHYCARDIA [None]
